FAERS Safety Report 13942815 (Version 1)
Quarter: 2017Q3

REPORT INFORMATION
  Report Type: Spontaneous
  Country: US (occurrence: US)
  Receive Date: 20170906
  Receipt Date: 20170906
  Transmission Date: 20171127
  Serious: Yes (Hospitalization, Other)
  Sender: FDA-Public Use
  Company Number: US-MYLANLABS-2017M1055056

PATIENT
  Age: 60 Year
  Sex: Male

DRUGS (1)
  1. AZATHIOPRINE. [Suspect]
     Active Substance: AZATHIOPRINE
     Indication: GLOMERULONEPHRITIS RAPIDLY PROGRESSIVE
     Dosage: 100 MG/DAY
     Route: 065

REACTIONS (1)
  - Traumatic lung injury [Recovered/Resolved]
